FAERS Safety Report 8368086-X (Version None)
Quarter: 2012Q2

REPORT INFORMATION
  Report Type: 
  Country: None (occurrence: None)
  Receive Date: 20120517
  Receipt Date: 20120514
  Transmission Date: 20120825
  Serious: Yes (Other)
  Sender: FDA-Public Use
  Company Number: JP-PFIZER INC-2012100404

PATIENT
  Age: 87 Year
  Sex: Male

DRUGS (10)
  1. PURSENNID [Concomitant]
     Dosage: UNK
  2. MUCOSOLVAN [Concomitant]
     Dosage: UNK
     Dates: end: 20120410
  3. DIGOXIN [Concomitant]
     Dosage: UNK
  4. AMLODIPINE [Concomitant]
     Dosage: 5 MG, 1X/DAY
  5. LYRICA [Suspect]
     Indication: POST HERPETIC NEURALGIA
     Dosage: 75 MG, 2X/DAY
     Route: 048
     Dates: start: 20120409, end: 20120427
  6. VESICARE [Concomitant]
     Dosage: 5 MG, UNK
     Dates: end: 20120410
  7. FAMOTIDINE [Concomitant]
     Dosage: 20 MG, UNK
  8. AMARYL [Concomitant]
     Dosage: 3 MG, 1X/DAY
  9. NITRODERM [Concomitant]
     Dosage: UNK
  10. TAMSULOSIN HCL [Concomitant]
     Dosage: 0.2 MG, UNK

REACTIONS (2)
  - DEMENTIA [None]
  - URINARY RETENTION [None]
